FAERS Safety Report 6357848-6 (Version None)
Quarter: 2009Q3

REPORT INFORMATION
  Report Type: 
  Country: None (occurrence: None)
  Receive Date: 20090916
  Receipt Date: 20090908
  Transmission Date: 20100115
  Serious: Yes (Hospitalization)
  Sender: FDA-Public Use
  Company Number: GXKR2009BE09098

PATIENT
  Age: 68 Year
  Sex: Female

DRUGS (9)
  1. DICLOFENAC SODIUM [Suspect]
     Indication: BACK PAIN
     Route: 065
  2. DIAZEPAM [Concomitant]
     Route: 065
  3. AMITRIPTYLINE [Concomitant]
     Route: 065
  4. VENLAFAXINE HCL [Concomitant]
     Route: 065
  5. PANTOPRAZOLE SODIUM [Concomitant]
     Dosage: UNK
     Route: 065
  6. MORPHINE [Concomitant]
     Route: 065
  7. FUROSEMIDE [Concomitant]
     Route: 065
  8. LORAZEPAM [Concomitant]
     Dosage: UNK
     Route: 065
  9. ATENOLOL [Concomitant]
     Dosage: UNK
     Route: 065

REACTIONS (4)
  - DRUG TOXICITY [None]
  - HAEMORRHAGE [None]
  - LINEAR IGA DISEASE [None]
  - VASCULITIS [None]
